APPROVED DRUG PRODUCT: ADDERALL XR 30
Active Ingredient: AMPHETAMINE ASPARTATE; AMPHETAMINE SULFATE; DEXTROAMPHETAMINE SACCHARATE; DEXTROAMPHETAMINE SULFATE
Strength: 7.5MG;7.5MG;7.5MG;7.5MG
Dosage Form/Route: CAPSULE, EXTENDED RELEASE;ORAL
Application: N021303 | Product #003 | TE Code: AB1
Applicant: TAKEDA PHARMACEUTICALS USA INC
Approved: Oct 11, 2001 | RLD: Yes | RS: Yes | Type: RX